FAERS Safety Report 5091408-2 (Version None)
Quarter: 2006Q3

REPORT INFORMATION
  Report Type: 
  Country: None (occurrence: None)
  Receive Date: 20060727
  Receipt Date: 20060601
  Transmission Date: 20061208
  Serious: Yes (Other)
  Sender: FDA-Public Use
  Company Number: 2006051344

PATIENT
  Age: 26 Year
  Sex: Female

DRUGS (5)
  1. LYRICA [Suspect]
     Indication: FIBROMYALGIA
  2. LYRICA [Suspect]
     Indication: INSOMNIA
  3. LYRICA [Suspect]
     Indication: PAIN
  4. PRILOSEC [Concomitant]
  5. MORPHINE SULFATE [Concomitant]

REACTIONS (2)
  - HALLUCINATION, VISUAL [None]
  - WEIGHT INCREASED [None]
